FAERS Safety Report 7744236-0 (Version None)
Quarter: 2011Q3

REPORT INFORMATION
  Report Type: 
  Country: None (occurrence: None)
  Receive Date: 20110912
  Receipt Date: 20110902
  Transmission Date: 20111222
  Serious: Yes (Disabling)
  Sender: FDA-Public Use
  Company Number: PHHY2011GB78340

PATIENT
  Age: 12 Year
  Sex: Female
  Weight: 33 kg

DRUGS (8)
  1. ITRACONAZOLE [Concomitant]
     Indication: CYSTIC FIBROSIS
     Dosage: 250 MG, UNK
     Route: 048
     Dates: start: 20090101
  2. VITAMIN B COMPLEX CAP [Concomitant]
     Indication: CYSTIC FIBROSIS
     Route: 048
  3. AZITHROMYCIN [Suspect]
     Indication: CYSTIC FIBROSIS
     Dosage: 250 MG, UNK
     Route: 048
     Dates: start: 20110301, end: 20110701
  4. CREON [Concomitant]
     Indication: CYSTIC FIBROSIS
     Route: 048
  5. COLISTIN SULFATE [Concomitant]
     Indication: CYSTIC FIBROSIS
     Dates: start: 20060101
  6. VITAMIN A [Concomitant]
     Indication: CYSTIC FIBROSIS
     Route: 048
  7. VITAMIN E [Concomitant]
     Indication: CYSTIC FIBROSIS
     Route: 048
  8. VITAMIN K TAB [Concomitant]
     Indication: CYSTIC FIBROSIS
     Route: 048

REACTIONS (2)
  - AGGRESSION [None]
  - PERSONALITY CHANGE [None]
